FAERS Safety Report 11493073 (Version 5)
Quarter: 2016Q2

REPORT INFORMATION
  Report Type: Report from Study
  Country: US (occurrence: US)
  Receive Date: 20150911
  Receipt Date: 20160412
  Transmission Date: 20160815
  Serious: Yes (Life-Threatening, Hospitalization)
  Sender: FDA-Public Use
  Company Number: US-ROCHE-1382118

PATIENT
  Age: 52 Year
  Sex: Male
  Weight: 130.6 kg

DRUGS (20)
  1. CLARITIN [Concomitant]
     Active Substance: LORATADINE
     Route: 048
  2. VITAMIN C [Concomitant]
     Active Substance: ASCORBIC ACID
     Route: 048
  3. CINNAMON BARK [Concomitant]
     Route: 048
  4. NAPROSYN [Suspect]
     Active Substance: NAPROXEN
     Indication: PAIN
     Dosage: AS NEEDED
     Route: 048
  5. ULTRAM [Concomitant]
     Active Substance: TRAMADOL HYDROCHLORIDE
     Dosage: AS NEEDED FOR PAIN
     Route: 048
     Dates: start: 20121218, end: 20140318
  6. TENORMIN [Concomitant]
     Active Substance: ATENOLOL
     Dosage: 2 TABS AT NIGHT
     Route: 048
  7. VITAMIN D3 [Concomitant]
     Active Substance: CHOLECALCIFEROL
     Dosage: 1000 UNIT
     Route: 048
  8. AQUASOL E [Concomitant]
     Route: 048
  9. FLEXERIL [Concomitant]
     Active Substance: CYCLOBENZAPRINE HYDROCHLORIDE
     Indication: MUSCLE SPASMS
     Dosage: AS NEEDED
     Route: 048
  10. PHENTERMINE. [Concomitant]
     Active Substance: PHENTERMINE
     Route: 048
  11. EFFEXOR XR [Concomitant]
     Active Substance: VENLAFAXINE HYDROCHLORIDE
     Route: 048
  12. XOLAIR [Suspect]
     Active Substance: OMALIZUMAB
     Indication: ANAPHYLACTIC REACTION
     Dosage: 25/MAR/2015?LAT DOSE ON: 27/JAN/2016
     Route: 058
  13. XOLAIR [Suspect]
     Active Substance: OMALIZUMAB
     Indication: ANAPHYLACTIC SHOCK
     Dosage: 26/FEB/2016
     Route: 058
  14. VALIUM [Suspect]
     Active Substance: DIAZEPAM
     Indication: ANXIETY
     Dosage: AS NEEDED
     Route: 048
  15. RISPERDAL [Concomitant]
     Active Substance: RISPERIDONE
     Dosage: 2 TABS AT NIGHT
     Route: 048
  16. NEURONTIN [Concomitant]
     Active Substance: GABAPENTIN
     Dosage: 2 CAPS EVERY NIGHT
     Route: 048
  17. ZYLOPRIM [Concomitant]
     Active Substance: ALLOPURINOL
     Route: 048
  18. LOTRISONE [Concomitant]
     Active Substance: BETAMETHASONE DIPROPIONATE\CLOTRIMAZOLE
     Route: 061
  19. HYDRODIURIL [Concomitant]
     Active Substance: HYDROCHLOROTHIAZIDE
     Route: 048
  20. ANDROGEL [Concomitant]
     Active Substance: TESTOSTERONE
     Dosage: APPLICATION
     Route: 062

REACTIONS (8)
  - Nausea [Unknown]
  - Hypersensitivity [Unknown]
  - Weight decreased [Unknown]
  - Diarrhoea [Unknown]
  - Anaphylactic reaction [Unknown]
  - Abdominal pain [Unknown]
  - Shock [Recovered/Resolved]
  - Off label use [Unknown]

NARRATIVE: CASE EVENT DATE: 20131204
